FAERS Safety Report 9998239 (Version 2)
Quarter: 2014Q2

REPORT INFORMATION
  Report Type: Spontaneous
  Country: US (occurrence: US)
  Receive Date: 20140311
  Receipt Date: 20140415
  Transmission Date: 20141212
  Serious: No
  Sender: FDA-Public Use
  Company Number: US-009507513-1403USA003163

PATIENT
  Age: 46 Year
  Sex: Female
  Weight: 64.4 kg

DRUGS (2)
  1. NEXPLANON [Suspect]
     Dosage: UNK
     Route: 059
     Dates: start: 20140218, end: 20140218
  2. NEXPLANON [Suspect]
     Dosage: UNK
     Route: 059
     Dates: start: 20140218

REACTIONS (3)
  - Device difficult to use [Recovered/Resolved]
  - Implant site bruising [Unknown]
  - Product quality issue [Unknown]
